FAERS Safety Report 19299282 (Version 3)
Quarter: 2021Q3

REPORT INFORMATION
  Report Type: Report from Study
  Country: GB (occurrence: GB)
  Receive Date: 20210525
  Receipt Date: 20210819
  Transmission Date: 20211014
  Serious: Yes (Hospitalization, Other)
  Sender: FDA-Public Use
  Company Number: GB-IPSEN BIOPHARMACEUTICALS, INC.-2021-12781

PATIENT
  Age: 75 Year
  Sex: Male

DRUGS (1)
  1. SOMATULINE AUTOGEL [Suspect]
     Active Substance: LANREOTIDE ACETATE
     Indication: NEUROENDOCRINE TUMOUR
     Dosage: 120 MG, Q3W (EVERY 21 DAYS) (120MG /0.5ML)
     Route: 058

REACTIONS (5)
  - Blood pressure abnormal [Unknown]
  - Malaise [Recovered/Resolved]
  - Angina pectoris [Recovered/Resolved]
  - Off label use [Unknown]
  - Angina pectoris [Unknown]

NARRATIVE: CASE EVENT DATE: 202011
